FAERS Safety Report 9129712 (Version 4)
Quarter: 2013Q2

REPORT INFORMATION
  Report Type: Spontaneous
  Country: US (occurrence: US)
  Receive Date: 20130228
  Receipt Date: 20130430
  Transmission Date: 20140414
  Serious: Yes (Other)
  Sender: FDA-Public Use
  Company Number: US-SANOFI-AVENTIS-2013SA019237

PATIENT
  Age: 76 Year
  Sex: Male
  Weight: 86 kg

DRUGS (16)
  1. PLAVIX [Suspect]
     Indication: ACUTE CORONARY SYNDROME
     Route: 048
     Dates: start: 20120813, end: 20120813
  2. ASA [Suspect]
     Indication: ACUTE CORONARY SYNDROME
     Route: 048
     Dates: start: 20120813, end: 20120814
  3. EFFIENT [Suspect]
     Dates: start: 20120814, end: 20120815
  4. EFFIENT [Suspect]
     Dates: start: 20120813, end: 20120813
  5. BLINDED THERAPY [Suspect]
     Indication: ACUTE CORONARY SYNDROME
     Route: 042
     Dates: start: 20120813, end: 20120814
  6. LOVENOX [Concomitant]
     Dates: start: 20120812, end: 20120812
  7. ZEBETA [Concomitant]
     Dates: start: 20120813, end: 20120814
  8. CARDIZEM [Concomitant]
     Dates: start: 20120813, end: 20120814
  9. DOXAZOSIN [Concomitant]
     Dates: start: 20120812, end: 20120814
  10. PRAVASTATIN [Concomitant]
     Dates: start: 20120812, end: 20120813
  11. PROTONIX [Concomitant]
     Dates: start: 20120813, end: 20120815
  12. MAGNESIUM OXIDE [Concomitant]
     Dates: start: 20120813, end: 20120813
  13. GLYCERYL TRINITRATE [Concomitant]
     Dates: start: 20120813, end: 20120813
  14. GLUCOTROL [Concomitant]
     Dates: start: 20120813, end: 20120815
  15. INSULIN [Concomitant]
     Dosage: DOSE:16 UNIT(S)
     Dates: start: 20120813, end: 20120815
  16. ATACAND [Concomitant]
     Dates: start: 20120813, end: 20120814

REACTIONS (1)
  - Renal failure acute [Recovered/Resolved]
